FAERS Safety Report 6064787-7 (Version None)
Quarter: 2009Q1

REPORT INFORMATION
  Report Type: 
  Country: None (occurrence: None)
  Receive Date: 20090204
  Receipt Date: 20090130
  Transmission Date: 20090719
  Serious: Yes (Hospitalization)
  Sender: FDA-Public Use
  Company Number: US-BRISTOL-MYERS SQUIBB COMPANY-14489389

PATIENT
  Age: 80 Year
  Sex: Male
  Weight: 93 kg

DRUGS (4)
  1. ERBITUX [Suspect]
     Indication: OESOPHAGEAL ADENOCARCINOMA
     Dosage: START DATE OF 1ST C:2DEC08
     Dates: start: 20090106, end: 20090106
  2. CISPLATIN [Suspect]
     Indication: OESOPHAGEAL ADENOCARCINOMA
     Dosage: START DATE OF 1ST C:2DEC08
     Dates: start: 20090106, end: 20090106
  3. TAXOL [Suspect]
     Indication: OESOPHAGEAL ADENOCARCINOMA
     Dosage: START DATE OF 1ST C:2DEC08
     Dates: start: 20090106, end: 20090106
  4. RADIATION THERAPY [Suspect]
     Indication: OESOPHAGEAL ADENOCARCINOMA
     Dosage: 1DF= FRACTION; TOTAL DOSE TO DATE=5040GY;LAST DATE OF TREAMENT 13JAN09  EXTERNAL BEAM NOS
     Dates: end: 20090113

REACTIONS (5)
  - DECUBITUS ULCER [None]
  - DEHYDRATION [None]
  - FATIGUE [None]
  - HAEMOGLOBIN DECREASED [None]
  - PERIPHERAL MOTOR NEUROPATHY [None]
